FAERS Safety Report 23821308 (Version 3)
Quarter: 2024Q2

REPORT INFORMATION
  Report Type: Spontaneous
  Country: US (occurrence: US)
  Receive Date: 20240506
  Receipt Date: 20240530
  Transmission Date: 20240716
  Serious: Yes (Other)
  Sender: FDA-Public Use
  Company Number: US-PFIZER INC-PV202400057733

PATIENT
  Age: 77 Year
  Sex: Female
  Weight: 76.19 kg

DRUGS (1)
  1. PREMARIN [Suspect]
     Active Substance: ESTROGENS, CONJUGATED
     Indication: Hormone therapy
     Dosage: 0.625 MG, 1X/DAY
     Route: 048
     Dates: start: 1974

REACTIONS (1)
  - Deafness [Unknown]
